FAERS Safety Report 21904392 (Version 5)
Quarter: 2023Q4

REPORT INFORMATION
  Report Type: Report from Study
  Country: GT (occurrence: GT)
  Receive Date: 20230124
  Receipt Date: 20231204
  Transmission Date: 20240109
  Serious: Yes (Other)
  Sender: FDA-Public Use
  Company Number: GT-002147023-NVSC2022GT295406

PATIENT
  Age: 40 Year
  Sex: Female
  Weight: 46.259 kg

DRUGS (4)
  1. KISQALI [Suspect]
     Active Substance: RIBOCICLIB
     Indication: Breast cancer
     Dosage: 600 MG, QD
     Route: 048
     Dates: start: 20181001
  2. KISQALI [Suspect]
     Active Substance: RIBOCICLIB
     Dosage: 600 MG, QD
     Route: 048
     Dates: start: 201904
  3. LETROZOLE [Suspect]
     Active Substance: LETROZOLE
     Indication: Product used for unknown indication
     Dosage: UNK
     Route: 065
  4. GOSERELIN [Concomitant]
     Active Substance: GOSERELIN
     Indication: Product used for unknown indication
     Dosage: UNK
     Route: 065

REACTIONS (17)
  - Food poisoning [Unknown]
  - Mucosal inflammation [Unknown]
  - Abdominal discomfort [Unknown]
  - Oesophageal disorder [Unknown]
  - Reflux gastritis [Unknown]
  - Stress [Unknown]
  - Discomfort [Unknown]
  - Malaise [Unknown]
  - Weight decreased [Unknown]
  - Dry skin [Unknown]
  - Vomiting [Unknown]
  - Nausea [Unknown]
  - Cough [Unknown]
  - Respiratory symptom [Unknown]
  - Influenza [Unknown]
  - Depressed mood [Unknown]
  - Neck mass [Unknown]

NARRATIVE: CASE EVENT DATE: 20221201
